FAERS Safety Report 9379219 (Version 1)
Quarter: 2013Q2

REPORT INFORMATION
  Report Type: Spontaneous
  Country: US (occurrence: None)
  Receive Date: 20130626
  Receipt Date: 20130626
  Transmission Date: 20140414
  Serious: Yes (Hospitalization)
  Sender: FDA-Public Use
  Company Number: JPI-P-033097

PATIENT
  Age: 57 Year
  Sex: Male
  Weight: 97.52 kg

DRUGS (4)
  1. XYREM (500 MILLIGRAM/MILLILITERS, SOLUTION) (SODIUM OXYBATE) [Suspect]
     Indication: SLEEP APNOEA SYNDROME
     Route: 048
     Dates: start: 201011
  2. XYREM (500 MILLIGRAM/MILLILITERS, SOLUTION) (SODIUM OXYBATE) [Suspect]
     Indication: NARCOLEPSY
     Route: 048
     Dates: start: 201011
  3. SERTRALINE HYDROCHLORIDE [Concomitant]
  4. ATRVASTATIN CALCIUM [Concomitant]

REACTIONS (1)
  - Cerebrovascular accident [None]
